FAERS Safety Report 21004777 (Version 2)
Quarter: 2022Q3

REPORT INFORMATION
  Report Type: Report from Study
  Country: CN (occurrence: CN)
  Receive Date: 20220624
  Receipt Date: 20220706
  Transmission Date: 20221027
  Serious: Yes (Hospitalization)
  Sender: FDA-Public Use
  Company Number: CN-NOVARTISPH-NVSC2022CN143707

PATIENT
  Age: 75 Year
  Sex: Male
  Weight: 50 kg

DRUGS (4)
  1. OCIPERLIMAB [Suspect]
     Active Substance: OCIPERLIMAB
     Indication: Neoplasm
     Dosage: 900 MG, Q3W
     Route: 042
     Dates: start: 20220211, end: 20220506
  2. TISLELIZUMAB [Suspect]
     Active Substance: TISLELIZUMAB
     Indication: Neoplasm
     Dosage: 200 MG, Q3W
     Route: 042
     Dates: start: 20220211, end: 20220506
  3. CAPECITABINE [Suspect]
     Active Substance: CAPECITABINE
     Indication: Neoplasm
     Dosage: 1500 MG, BID
     Route: 048
     Dates: start: 20220211, end: 20220513
  4. PREDNISONE ACETATE [Concomitant]
     Active Substance: PREDNISONE ACETATE
     Indication: Product used for unknown indication
     Dosage: 40 MG, QD
     Route: 048
     Dates: start: 20220427, end: 20220513

REACTIONS (1)
  - Malaise [Unknown]

NARRATIVE: CASE EVENT DATE: 20220612
